FAERS Safety Report 23697328 (Version 1)
Quarter: 2024Q2

REPORT INFORMATION
  Report Type: Spontaneous
  Country: US (occurrence: US)
  Receive Date: 20240402
  Receipt Date: 20240402
  Transmission Date: 20240716
  Serious: No
  Sender: FDA-Public Use
  Company Number: US-BAYER-2024A043982

PATIENT
  Age: 76 Year
  Sex: Female

DRUGS (2)
  1. DIETARY SUPPLEMENT\MAGNESIUM OXIDE [Suspect]
     Active Substance: DIETARY SUPPLEMENT\MAGNESIUM OXIDE
     Indication: Gastrointestinal disorder
     Dosage: 2-4 CAPLETS IN A DAY, OCCATIOALLY
     Route: 048
  2. MIRALAX [Suspect]
     Active Substance: POLYETHYLENE GLYCOL 3350
     Route: 048

REACTIONS (6)
  - Lacrimation increased [Recovering/Resolving]
  - Swelling face [Recovering/Resolving]
  - Dyspnoea [None]
  - Paraesthesia [None]
  - Hypoaesthesia [None]
  - Illness [None]
